FAERS Safety Report 7427881-1 (Version None)
Quarter: 2011Q2

REPORT INFORMATION
  Report Type: 
  Country: None (occurrence: None)
  Receive Date: 20110421
  Receipt Date: 20110413
  Transmission Date: 20111010
  Serious: Yes (Hospitalization)
  Sender: FDA-Public Use
  Company Number: US-ELI_LILLY_AND_COMPANY-US201104005398

PATIENT
  Sex: Male

DRUGS (6)
  1. HUMULIN N [Suspect]
     Dosage: 40 U, BID
     Dates: end: 20110408
  2. HUMULIN R [Suspect]
     Indication: TYPE 2 DIABETES MELLITUS
     Dosage: 30 U, BID
  3. BETA BLOCKING AGENTS [Concomitant]
  4. HYDRALAZINE [Concomitant]
     Dosage: 100 MG, BID
  5. HUMULIN N [Suspect]
     Indication: TYPE 2 DIABETES MELLITUS
     Dosage: 40 U, BID
     Dates: end: 20110408
  6. HUMULIN R [Suspect]
     Dosage: 30 U, BID

REACTIONS (8)
  - FEELING ABNORMAL [None]
  - BLOOD GLUCOSE INCREASED [None]
  - DYSPNOEA [None]
  - DRUG INEFFECTIVE [None]
  - BLOOD PRESSURE DECREASED [None]
  - HEART RATE INCREASED [None]
  - SPINAL COLUMN STENOSIS [None]
  - JOINT ANKYLOSIS [None]
